FAERS Safety Report 25663872 (Version 1)
Quarter: 2025Q3

REPORT INFORMATION
  Report Type: Spontaneous
  Country: BR (occurrence: BR)
  Receive Date: 20250811
  Receipt Date: 20250811
  Transmission Date: 20251020
  Serious: Yes (Hospitalization)
  Sender: AMGEN
  Company Number: BR-AMGEN-BRASP2025153641

PATIENT
  Age: 53 Year
  Sex: Female

DRUGS (6)
  1. RITUXIMAB [Suspect]
     Active Substance: RITUXIMAB
     Indication: Stiff person syndrome
     Route: 065
     Dates: start: 2023
  2. DIAZEPAM [Concomitant]
     Active Substance: DIAZEPAM
     Indication: Stiff person syndrome
     Route: 065
     Dates: start: 2023
  3. DIAZEPAM [Concomitant]
     Active Substance: DIAZEPAM
     Route: 065
     Dates: start: 2023
  4. HUMAN IMMUNOGLOBULIN G [Concomitant]
     Active Substance: HUMAN IMMUNOGLOBULIN G
     Indication: Stiff person syndrome
     Route: 040
     Dates: start: 2023
  5. BACLOFEN [Concomitant]
     Active Substance: BACLOFEN
     Indication: Stiff person syndrome
     Dates: start: 2023
  6. GABAPENTIN [Concomitant]
     Active Substance: GABAPENTIN
     Indication: Stiff person syndrome
     Route: 065
     Dates: start: 2023

REACTIONS (3)
  - Unevaluable event [Unknown]
  - Drug effective for unapproved indication [Unknown]
  - Off label use [Unknown]

NARRATIVE: CASE EVENT DATE: 20230101
